FAERS Safety Report 9184276 (Version 5)
Quarter: 2013Q2

REPORT INFORMATION
  Report Type: Report from Study
  Country: CA (occurrence: CA)
  Receive Date: 20130322
  Receipt Date: 20130620
  Transmission Date: 20140414
  Serious: Yes (Other)
  Sender: FDA-Public Use
  Company Number: CA-ROCHE-1204467

PATIENT
  Age: 38 Year
  Sex: Female
  Weight: 49 kg

DRUGS (9)
  1. AVASTIN [Suspect]
     Indication: ANAPLASTIC OLIGODENDROGLIOMA
     Dosage: THERAPY START DATE: 06/MAR/2013
     Route: 042
     Dates: end: 20130529
  2. CARBOPLATIN [Suspect]
     Indication: ANAPLASTIC OLIGODENDROGLIOMA
     Route: 042
  3. DECADRON [Suspect]
     Indication: ANAPLASTIC OLIGODENDROGLIOMA
     Route: 065
  4. TYLENOL [Concomitant]
     Indication: PREMEDICATION
     Route: 048
     Dates: start: 20130306, end: 20130529
  5. BENADRYL [Concomitant]
     Indication: PREMEDICATION
     Route: 048
     Dates: start: 20130306, end: 20130529
  6. SOLU-MEDROL [Concomitant]
     Indication: PREMEDICATION
     Route: 042
     Dates: start: 20130306, end: 20130529
  7. KEPPRA [Concomitant]
  8. FRISIUM [Concomitant]
  9. PANTOPRAZOLE [Concomitant]

REACTIONS (5)
  - Hemiparesis [Not Recovered/Not Resolved]
  - Motor dysfunction [Not Recovered/Not Resolved]
  - Disease progression [Unknown]
  - Drug effect decreased [Unknown]
  - Diarrhoea [Recovered/Resolved]
